FAERS Safety Report 21306529 (Version 1)
Quarter: 2022Q3

REPORT INFORMATION
  Report Type: Spontaneous
  Country: JP (occurrence: JP)
  Receive Date: 20220908
  Receipt Date: 20220908
  Transmission Date: 20221027
  Serious: Yes (Death)
  Sender: FDA-Public Use
  Company Number: JP-009507513-1710JPN010044

PATIENT
  Age: 43 Year
  Sex: Female

DRUGS (3)
  1. REFLEX [Suspect]
     Active Substance: MIRTAZAPINE
     Indication: Product used for unknown indication
     Dosage: DAILY DOSE UNKNOWN
     Route: 048
  2. ZOLPIDEM TARTRATE [Suspect]
     Active Substance: ZOLPIDEM TARTRATE
     Indication: Product used for unknown indication
     Dosage: DAILY DOSE UNKNOWN
     Route: 048
  3. LEVOMEPROMAZINE MALEATE [Concomitant]
     Active Substance: LEVOMEPROMAZINE MALEATE
     Indication: Product used for unknown indication
     Dosage: DAILY DOSE UNKNOWN
     Route: 048

REACTIONS (1)
  - Intentional overdose [Fatal]
